FAERS Safety Report 4308846-5 (Version None)
Quarter: 2004Q1

REPORT INFORMATION
  Report Type: 
  Country: None (occurrence: None)
  Receive Date: 20040301
  Receipt Date: 20040301
  Transmission Date: 20041129
  Serious: Yes (Hospitalization)
  Sender: FDA-Public Use
  Company Number: None

PATIENT
  Age: 84 Year
  Sex: Female
  Weight: 53.5 kg

DRUGS (7)
  1. CIPRO [Suspect]
     Indication: URINARY TRACT INFECTION
     Dosage: 250 MG PO BID
     Route: 048
  2. PEPCID [Concomitant]
  3. FRAGMIN [Concomitant]
  4. CEPASTAT [Concomitant]
  5. ROXICET [Concomitant]
  6. AMBIEN [Concomitant]
  7. CHLORASEPTIC [Concomitant]

REACTIONS (1)
  - HEPATITIS [None]
